FAERS Safety Report 21100365 (Version 1)
Quarter: 2022Q3

REPORT INFORMATION
  Report Type: Spontaneous
  Country: GB (occurrence: GB)
  Receive Date: 20220719
  Receipt Date: 20220719
  Transmission Date: 20221026
  Serious: No
  Sender: FDA-Public Use
  Company Number: None

PATIENT
  Sex: Male

DRUGS (6)
  1. PAXLOVID [Suspect]
     Active Substance: NIRMATRELVIR\RITONAVIR
     Indication: Coronavirus infection
     Dosage: UNK
  2. SIMVASTATIN [Suspect]
     Active Substance: SIMVASTATIN
     Dosage: UNK
  3. INDAPAMIDE [Concomitant]
     Active Substance: INDAPAMIDE
     Dosage: UNK
  4. LISINOPRIL [Concomitant]
     Active Substance: LISINOPRIL
     Dosage: UNK
  5. METFORMIN [Concomitant]
     Active Substance: METFORMIN HYDROCHLORIDE
     Dosage: UNK
  6. RILUZOLE [Concomitant]
     Active Substance: RILUZOLE
     Dosage: UNK

REACTIONS (2)
  - Rash erythematous [Recovered/Resolved]
  - Contraindicated product administered [Unknown]
